FAERS Safety Report 8563771-9 (Version None)
Quarter: 2012Q3

REPORT INFORMATION
  Report Type: 
  Country: None (occurrence: None)
  Receive Date: 20120803
  Receipt Date: 20120726
  Transmission Date: 20120928
  Serious: Yes (Death, Hospitalization)
  Sender: FDA-Public Use
  Company Number: BR-BRISTOL-MYERS SQUIBB COMPANY-16583940

PATIENT
  Age: 46 Year
  Sex: Male

DRUGS (1)
  1. IPILIMUMAB [Suspect]
     Indication: MALIGNANT MELANOMA
     Dosage: NO OF COURSE-2
     Route: 042
     Dates: start: 20120321, end: 20120412

REACTIONS (2)
  - NEOPLASM MALIGNANT [None]
  - ANAEMIA [None]
